FAERS Safety Report 11644621 (Version 2)
Quarter: 2015Q4

REPORT INFORMATION
  Report Type: Spontaneous
  Country: US (occurrence: US)
  Receive Date: 20151020
  Receipt Date: 20151106
  Transmission Date: 20160304
  Serious: Yes (Other)
  Sender: FDA-Public Use
  Company Number: US-LPDUSPRD-20150815

PATIENT
  Age: 45 Year
  Sex: Male

DRUGS (11)
  1. FENTANYL. [Concomitant]
     Active Substance: FENTANYL
     Dosage: DOSE NOT PROVIDED
     Route: 042
  2. MANNITOL INJECTION, USP (4050-25) [Suspect]
     Active Substance: MANNITOL
     Dosage: 2 DOSES
     Route: 042
  3. PROPOFOL. [Concomitant]
     Active Substance: PROPOFOL
     Dosage: DOSE NOT PROVIDED
     Route: 041
  4. ETOMIDATE. [Concomitant]
     Active Substance: ETOMIDATE
     Dosage: DOSE NOT PROVIDED
     Route: 042
  5. LORAZEPAM. [Concomitant]
     Active Substance: LORAZEPAM
     Dosage: DOSE NOT PROVIDED
     Route: 042
  6. 3% SODIUM CHLORIDE [Concomitant]
     Dosage: DOSE NOT PROVIDED
     Route: 042
  7. NOREPINEPHRINE [Concomitant]
     Active Substance: NOREPINEPHRINE\NOREPINEPHRINE BITARTRATE
     Dosage: DOSE NOT PROVIDED
     Route: 042
  8. PENTOBARBITAL. [Suspect]
     Active Substance: PENTOBARBITAL
     Dosage: NOT PROVIDED
     Route: 065
  9. PHENYTOIN SODIUM INJECTION (40042-009-02) [Concomitant]
     Active Substance: PHENYTOIN SODIUM
     Dosage: DOSE NOT PROVIDED
     Route: 065
  10. SUCCINYLCHOLINE [Concomitant]
     Active Substance: SUCCINYLCHOLINE
     Dosage: DOSE NOT PROVIDED
     Route: 042
  11. SODIUM ACETATE. [Concomitant]
     Active Substance: SODIUM ACETATE
     Dosage: DOSE NOT PROVIDED
     Route: 042

REACTIONS (1)
  - Hypokalaemia [Unknown]
